FAERS Safety Report 6412786-5 (Version None)
Quarter: 2009Q4

REPORT INFORMATION
  Report Type: 
  Country: None (occurrence: None)
  Receive Date: 20091023
  Receipt Date: 20091013
  Transmission Date: 20100525
  Serious: No
  Sender: FDA-Public Use
  Company Number: FR-ELI_LILLY_AND_COMPANY-FR200910003526

PATIENT
  Age: 75 Year
  Sex: Male

DRUGS (6)
  1. CIALIS [Suspect]
     Indication: ERECTILE DYSFUNCTION
     Dosage: 20 MG, UNK
     Route: 048
     Dates: start: 20090501, end: 20090101
  2. AMLODIPINE BESYLATE [Concomitant]
     Dosage: UNKNOWN
  3. MICARDIS [Concomitant]
     Dosage: UNKNOWN
  4. SIMVASTATIN [Concomitant]
     Dosage: UNKNOWN
  5. AVODART [Concomitant]
     Dosage: UNKNOWN
  6. BONIVA [Concomitant]
     Dosage: UNKNOWN

REACTIONS (2)
  - BLOOD PRESSURE INCREASED [None]
  - VISUAL ACUITY REDUCED [None]
